FAERS Safety Report 4670262-4 (Version None)
Quarter: 2005Q2

REPORT INFORMATION
  Report Type: 
  Country: None (occurrence: None)
  Receive Date: 20050520
  Receipt Date: 20050509
  Transmission Date: 20051028
  Serious: Yes (Hospitalization)
  Sender: FDA-Public Use
  Company Number: 2005071653

PATIENT
  Age: 68 Year
  Sex: Male
  Weight: 81.6475 kg

DRUGS (3)
  1. DIPHENHYDRAMINE HCL [Suspect]
     Indication: DERMATITIS CONTACT
     Dosage: 1 TAB EVERY 4-6 HRS, ORAL
     Route: 048
     Dates: start: 20050414, end: 20050417
  2. BENADRYL CREAM ORIGINAL STRENGTH (DIPHENHYDRAMINE, ZINC ACETATE) [Suspect]
     Indication: DERMATITIS CONTACT
     Dosage: UNSPECIFIED AMOUNT 2-3 TIMES PER DAY, TOPICAL
     Route: 061
     Dates: start: 20050414, end: 20050417
  3. HMG COA REDUCTASE INHIBITORS (HMG COA REDUCTASE INHIBITORS) [Concomitant]

REACTIONS (1)
  - DIZZINESS [None]
